FAERS Safety Report 5150659-9 (Version None)
Quarter: 2006Q4

REPORT INFORMATION
  Report Type: 
  Country: None (occurrence: None)
  Receive Date: 20061109
  Receipt Date: 20061109
  Transmission Date: 20070319
  Serious: No
  Sender: FDA-Public Use
  Company Number: None

PATIENT
  Age: 29 Year
  Sex: Female
  Weight: 83.0083 kg

DRUGS (1)
  1. ZICAM COLD REMEDY  NASAL GEL       MATRIXX INITIATIVES [Suspect]
     Indication: NASOPHARYNGITIS
     Dosage: 1 ^SPRAY^ PER NOSTRIL   EVERY 4 HOURS   NASAL
     Route: 045
     Dates: start: 20061102, end: 20061105

REACTIONS (4)
  - DYSGEUSIA [None]
  - HYPOSMIA [None]
  - NASAL DISCOMFORT [None]
  - SINUS CONGESTION [None]
